FAERS Safety Report 7312374-2 (Version None)
Quarter: 2011Q1

REPORT INFORMATION
  Report Type: 
  Country: None (occurrence: None)
  Receive Date: 20110214
  Receipt Date: 20110128
  Transmission Date: 20110831
  Serious: Yes (Other)
  Sender: FDA-Public Use
  Company Number: AUR-APL-2011-00380

PATIENT
  Age: 51 Year

DRUGS (7)
  1. MIRTAZAPINE [Suspect]
     Indication: DEPRESSION
     Dosage: -DAILY
  2. ALLOPURINOL [Concomitant]
  3. COLCHICINE [Concomitant]
  4. METFORMIN [Suspect]
     Dosage: 1500MG-DAILY
  5. DOXAZOSIN MESYLATE [Suspect]
     Dosage: 4MG UNIT DOSE-DAILY
  6. CETIRIZINE HCL [Concomitant]
  7. VALSARTAN [Concomitant]

REACTIONS (1)
  - PANCREATITIS ACUTE [None]
